FAERS Safety Report 24765335 (Version 1)
Quarter: 2024Q4

REPORT INFORMATION
  Report Type: Spontaneous
  Country: US (occurrence: None)
  Receive Date: 20241219
  Receipt Date: 20241219
  Transmission Date: 20250115
  Serious: No
  Sender: Public
  Company Number: None

PATIENT
  Age: 64 Year
  Sex: Female
  Weight: 111 kg

DRUGS (1)
  1. ZEPBOUND [Suspect]
     Active Substance: TIRZEPATIDE
     Indication: Obesity
     Dosage: OTHER FREQUENCY : QWEEK;?
     Route: 058
     Dates: start: 20240415, end: 20240701

REACTIONS (1)
  - Vomiting [None]

NARRATIVE: CASE EVENT DATE: 20240701
